FAERS Safety Report 8734848 (Version 7)
Quarter: 2012Q4

REPORT INFORMATION
  Report Type: Report from Study
  Country: US (occurrence: US)
  Receive Date: 20120821
  Receipt Date: 20121217
  Transmission Date: 20130627
  Serious: Yes (Hospitalization)
  Sender: FDA-Public Use
  Company Number: US-PFIZER INC-2012199921

PATIENT
  Age: 16 Year
  Sex: Male
  Weight: 62.5 kg

DRUGS (7)
  1. ADVIL [Suspect]
     Indication: TENDONITIS
     Dosage: several times daily
  2. REMICADE [Suspect]
     Indication: COLITIS ULCERATIVE
     Dosage: No drug given
  3. RECOMBINANT [Suspect]
     Indication: COLITIS ULCERATIVE
     Dosage: No drug given
  4. 5-ASA [Concomitant]
     Dosage: UNK
     Route: 048
  5. MERCAPTOPURINE [Concomitant]
     Dosage: UNK
  6. CARAFATE [Concomitant]
     Dosage: UNK
  7. CONCERTA [Concomitant]
     Dosage: UNK

REACTIONS (4)
  - Gastritis [Recovered/Resolved]
  - Duodenitis [Recovered/Resolved]
  - Clostridial infection [Recovered/Resolved]
  - Gastroenteritis viral [Recovered/Resolved]
